FAERS Safety Report 15725674 (Version 6)
Quarter: 2019Q2

REPORT INFORMATION
  Report Type: Spontaneous
  Country: US (occurrence: US)
  Receive Date: 20181215
  Receipt Date: 20190429
  Transmission Date: 20190711
  Serious: Yes (Hospitalization)
  Sender: FDA-Public Use
  Company Number: US-ACTELION-A-NJ2018-183084

PATIENT
  Age: 7 Month
  Sex: Male

DRUGS (15)
  1. PULMICORT TURBUHALER [Concomitant]
     Active Substance: BUDESONIDE
     Dosage: .5 MG, Q12HRS
     Route: 055
  2. ENALAPRIL [Concomitant]
     Active Substance: ENALAPRIL
     Dosage: 0.4 MG, BID
     Route: 048
  3. TRACLEER [Suspect]
     Active Substance: BOSENTAN
     Dosage: 5 MG, BID
     Route: 048
  4. FUROSEMIDE. [Concomitant]
     Active Substance: FUROSEMIDE
     Dosage: 5 MG, BID
     Route: 048
  5. TRACLEER [Suspect]
     Active Substance: BOSENTAN
     Indication: PULMONARY HYPERTENSION
     Dosage: 9.35 MG, BID
     Route: 048
     Dates: start: 20181204, end: 20190108
  6. FUROSEMIDE. [Concomitant]
     Active Substance: FUROSEMIDE
     Dosage: 4.2 MG, BID
  7. SILDENAFIL. [Concomitant]
     Active Substance: SILDENAFIL
     Dosage: 5 MG Q8H
     Route: 048
  8. TRACLEER [Suspect]
     Active Substance: BOSENTAN
     Dosage: 5.1 MG, BID
     Route: 048
     Dates: start: 20181118
  9. CAPTOPRIL. [Concomitant]
     Active Substance: CAPTOPRIL
     Dosage: 1.26 MG, UNK
  10. ALBUTEROL. [Concomitant]
     Active Substance: ALBUTEROL
     Dosage: 2.5 MG, Q6HRS
     Route: 055
  11. CAPTOPRIL. [Concomitant]
     Active Substance: CAPTOPRIL
     Dosage: .3 MG/KG, TID
     Route: 048
  12. FUROSEMIDE. [Concomitant]
     Active Substance: FUROSEMIDE
     Dosage: 4.5 MG, TID
     Route: 048
  13. OXYGEN. [Concomitant]
     Active Substance: OXYGEN
     Dosage: 1.5 L, UNK
     Route: 045
  14. SILDENAFIL. [Concomitant]
     Active Substance: SILDENAFIL
     Dosage: 4.2 MG, TID
     Route: 048
  15. OXYGEN. [Concomitant]
     Active Substance: OXYGEN
     Dosage: 0.5 L, UNK
     Route: 045

REACTIONS (11)
  - Rhinovirus infection [Recovered/Resolved]
  - Enterovirus test positive [Recovered/Resolved]
  - Cough [Recovered/Resolved]
  - Cyanosis [Recovered/Resolved]
  - Dyspnoea [Not Recovered/Not Resolved]
  - Acute respiratory failure [Recovered/Resolved]
  - Oxygen saturation decreased [Recovered/Resolved]
  - Pneumonia aspiration [Recovered/Resolved]
  - Viral upper respiratory tract infection [Recovered/Resolved]
  - Hypoxia [Recovered/Resolved]
  - Use of accessory respiratory muscles [Unknown]

NARRATIVE: CASE EVENT DATE: 20181203
